FAERS Safety Report 7080117-6 (Version None)
Quarter: 2010Q4

REPORT INFORMATION
  Report Type: 
  Country: None (occurrence: None)
  Receive Date: 20101102
  Receipt Date: 20101029
  Transmission Date: 20110411
  Serious: Yes (Death)
  Sender: FDA-Public Use
  Company Number: PHHY2010US73073

PATIENT
  Sex: Female

DRUGS (1)
  1. GLEEVEC [Suspect]
     Indication: NEOPLASM
     Dosage: 500 MG,(400MG IN EVENING AND 100MG DURING LUNCH
     Route: 048
     Dates: start: 20090529

REACTIONS (1)
  - DEATH [None]
